FAERS Safety Report 4471057-7 (Version None)
Quarter: 2004Q4

REPORT INFORMATION
  Report Type: 
  Country: None (occurrence: None)
  Receive Date: 20041011
  Receipt Date: 20040811
  Transmission Date: 20050328
  Serious: Yes (Hospitalization)
  Sender: FDA-Public Use
  Company Number: CH-BRISTOL-MYERS SQUIBB COMPANY-12670543

PATIENT
  Age: 61 Year
  Sex: Male
  Weight: 80 kg

DRUGS (10)
  1. ABILIFY [Suspect]
     Indication: SCHIZOPHRENIA
     Route: 048
     Dates: start: 20040617, end: 20040730
  2. SEROQUEL [Suspect]
     Route: 048
     Dates: start: 20040101, end: 20040730
  3. TEMESTA [Concomitant]
     Dates: start: 20040104, end: 20040630
  4. COZAAR [Concomitant]
     Dates: start: 20040601, end: 20040730
  5. NORVASC [Concomitant]
     Dates: start: 20030701, end: 20040730
  6. NEXIUM [Concomitant]
  7. BENERVA [Concomitant]
  8. BECOZYM [Concomitant]
  9. VIOXX [Concomitant]
  10. SYMBICORT [Concomitant]

REACTIONS (5)
  - ANAEMIA MACROCYTIC [None]
  - CHRONIC OBSTRUCTIVE AIRWAYS DISEASE [None]
  - HYPERTENSION [None]
  - NEPHROLITHIASIS [None]
  - PANCREATITIS ACUTE [None]
